FAERS Safety Report 4588938-6 (Version None)
Quarter: 2005Q1

REPORT INFORMATION
  Report Type: 
  Country: None (occurrence: None)
  Receive Date: 20050216
  Receipt Date: 20050128
  Transmission Date: 20050727
  Serious: Yes (Hospitalization, Other)
  Sender: FDA-Public Use
  Company Number: US_0502111604

PATIENT
  Sex: Female

DRUGS (2)
  1. PROZAC [Suspect]
  2. PAXIL [Concomitant]

REACTIONS (12)
  - AGITATION [None]
  - ANAPHYLACTIC SHOCK [None]
  - CONSTIPATION [None]
  - DEPRESSION [None]
  - DRUG INTERACTION [None]
  - HEADACHE [None]
  - INSOMNIA [None]
  - INTESTINAL OBSTRUCTION [None]
  - NIGHTMARE [None]
  - SOMNOLENCE [None]
  - TREMOR [None]
  - WEIGHT INCREASED [None]
